FAERS Safety Report 8844047 (Version 1)
Quarter: 2012Q4

REPORT INFORMATION
  Report Type: 
  Country: FR (occurrence: FR)
  Receive Date: 20121016
  Receipt Date: 20121016
  Transmission Date: 20130627
  Serious: Yes (Hospitalization)
  Sender: FDA-Public Use
  Company Number: FR-PFIZER INC-2012252559

PATIENT
  Age: 83 Year
  Sex: Male

DRUGS (10)
  1. ALDACTONE [Suspect]
     Dosage: 0.5 DF, 1x/day
     Route: 048
     Dates: end: 20120703
  2. PREVISCAN [Suspect]
     Indication: THROMBOSIS PROPHYLAXIS
     Dosage: 20 mg, 1x/day
     Route: 048
     Dates: start: 20120627, end: 20120628
  3. PREVISCAN [Suspect]
     Dosage: 30 mg, 1x/day
     Dates: start: 20120629, end: 20120901
  4. PREVISCAN [Suspect]
     Dosage: UNK
     Dates: start: 20120703
  5. LASILIX [Suspect]
     Dosage: UNK
     Route: 048
     Dates: start: 2011, end: 20120703
  6. BISOPROLOL [Concomitant]
     Dosage: 2.5 mg, daily
  7. EFFEXOR [Concomitant]
     Dosage: 75 mg, daily
  8. ALPRAZOLAM [Concomitant]
     Dosage: 0.25 mg, 5 times a days
  9. COMBIVIR [Concomitant]
  10. VIRAMUNE [Concomitant]

REACTIONS (1)
  - Neutropenia [Unknown]
